FAERS Safety Report 7614334 (Version 4)
Quarter: 2013Q4

REPORT INFORMATION
  Report Type: Report from Study
  Country: DE (occurrence: DE)
  Receive Date: 20101001
  Receipt Date: 20131009
  Transmission Date: 20140711
  Serious: Yes (Death, Life-Threatening, Hospitalization)
  Sender: FDA-Public Use
  Company Number: DE-ROCHE-729863

PATIENT
  Age: 50 Year
  Sex: Male
  Weight: 102 kg

DRUGS (9)
  1. BEVACIZUMAB [Suspect]
     Indication: COLORECTAL CANCER METASTATIC
     Route: 042
     Dates: start: 20100914, end: 20100918
  2. CAPECITABINE [Suspect]
     Indication: COLORECTAL CANCER METASTATIC
     Route: 048
     Dates: start: 20100914, end: 20100918
  3. CETUXIMAB [Suspect]
     Indication: COLON CANCER METASTATIC
     Route: 042
     Dates: start: 20110411, end: 20110907
  4. IRINOTECAN [Suspect]
     Indication: COLORECTAL CANCER METASTATIC
     Route: 042
     Dates: start: 20100914, end: 20110907
  5. KEVATRIL [Concomitant]
     Route: 042
  6. MINOCYCLINE [Concomitant]
     Indication: ACNE
     Route: 048
     Dates: start: 20110517, end: 20111105
  7. IBUPROFEN [Concomitant]
     Indication: PAIN
     Route: 048
     Dates: start: 201110, end: 20111105
  8. OMEPRAZOLE [Concomitant]
     Indication: PROPHYLAXIS AGAINST GASTROINTESTINAL ULCER
     Route: 048
  9. TARGIN [Concomitant]
     Indication: PAIN
     Route: 048
     Dates: start: 201110, end: 20111105

REACTIONS (4)
  - Ileal perforation [Fatal]
  - Acute coronary syndrome [Not Recovered/Not Resolved]
  - Malignant neoplasm progression [Unknown]
  - Rash [Recovered/Resolved]
